FAERS Safety Report 20024081 (Version 1)
Quarter: 2021Q4

REPORT INFORMATION
  Report Type: Spontaneous
  Country: None (occurrence: JP)
  Receive Date: 20211102
  Receipt Date: 20211102
  Transmission Date: 20220303
  Serious: Yes (Other)
  Sender: FDA-Public Use
  Company Number: JP-Breckenridge Pharmaceutical, Inc.-2121335

PATIENT
  Age: 37 Year
  Sex: Male

DRUGS (3)
  1. LANSOPRAZOLE [Suspect]
     Active Substance: LANSOPRAZOLE
     Route: 048
     Dates: start: 202010, end: 202011
  2. CARBAMAZEPINE [Suspect]
     Active Substance: CARBAMAZEPINE
  3. LOXOPROFEN SODIUM DIHYDRATE [Suspect]
     Active Substance: LOXOPROFEN SODIUM DIHYDRATE

REACTIONS (1)
  - Oculomucocutaneous syndrome [Unknown]
